FAERS Safety Report 5899779-1 (Version None)
Quarter: 2008Q3

REPORT INFORMATION
  Report Type: 
  Country: None (occurrence: None)
  Receive Date: 20080926
  Receipt Date: 20080918
  Transmission Date: 20090109
  Serious: Yes (Hospitalization, Other)
  Sender: FDA-Public Use
  Company Number: US-AMGEN-QUU308697

PATIENT
  Sex: Female

DRUGS (1)
  1. ENBREL [Suspect]
     Indication: RHEUMATOID ARTHRITIS
     Route: 058
     Dates: start: 20030214

REACTIONS (4)
  - ASTHMA [None]
  - CORONARY ARTERY BYPASS [None]
  - DIABETES MELLITUS [None]
  - URINARY TRACT INFECTION [None]
